FAERS Safety Report 19105259 (Version 1)
Quarter: 2021Q2

REPORT INFORMATION
  Report Type: Other
  Country: GB (occurrence: GB)
  Receive Date: 20210407
  Receipt Date: 20210407
  Transmission Date: 20210717
  Serious: No
  Sender: FDA-Public Use
  Company Number: GB-NEPHRON PHARMACEUTICALS CORPORATION-2109043

PATIENT
  Age: 79 Year
  Sex: Female

DRUGS (1)
  1. IPRATROPIUM BROMIDE INHALATION SOLUTION, 0.02% [Suspect]
     Active Substance: IPRATROPIUM BROMIDE
     Indication: CHRONIC OBSTRUCTIVE PULMONARY DISEASE
     Route: 055

REACTIONS (1)
  - Mydriasis [Recovered/Resolved]
